FAERS Safety Report 24638739 (Version 1)
Quarter: 2024Q4

REPORT INFORMATION
  Report Type: Report from Study
  Country: GB (occurrence: GB)
  Receive Date: 20241119
  Receipt Date: 20241119
  Transmission Date: 20250115
  Serious: Yes (Other)
  Sender: EMD SERONO INC
  Company Number: GB-Merck Healthcare KGaA-2024060789

PATIENT
  Sex: Male

DRUGS (1)
  1. MAVENCLAD [Suspect]
     Active Substance: CLADRIBINE
     Indication: Multiple sclerosis
     Dosage: YEAR ONE THERAPY:  2 TABLETS ON DAYS 1 TO 4 AND 1 TABLET ON DAY 5
     Route: 048
     Dates: start: 20241104

REACTIONS (5)
  - Abdominal discomfort [Unknown]
  - Abdominal pain upper [Unknown]
  - Rectal haemorrhage [Unknown]
  - Dry skin [Unknown]
  - Yellow skin [Unknown]
